FAERS Safety Report 8932488 (Version 1)
Quarter: 2012Q4

REPORT INFORMATION
  Report Type: Spontaneous
  Country: US (occurrence: None)
  Receive Date: 20121126
  Receipt Date: 20121126
  Transmission Date: 20130627
  Serious: Yes (Hospitalization)
  Sender: FDA-Public Use
  Company Number: None

PATIENT
  Age: 99 Year
  Sex: Female
  Weight: 74.5 kg

DRUGS (20)
  1. XARELTO [Suspect]
     Indication: VENOUS THROMBOEMBOLISM
     Route: 048
     Dates: start: 20121026, end: 20121108
  2. XARELTO [Suspect]
     Indication: PROPHYLAXIS
     Route: 048
     Dates: start: 20121026, end: 20121108
  3. XARELTO [Suspect]
     Indication: POSTOPERATIVE CARE
     Route: 048
     Dates: start: 20121026, end: 20121108
  4. TYLENOL [Concomitant]
  5. AMLODIPINE [Concomitant]
  6. DULCOLAX [Concomitant]
  7. CALCIUM WITH VITAMIN D2 [Concomitant]
  8. VITAMIN B12 [Concomitant]
  9. FERROUS SULFATE [Concomitant]
  10. DOCUSATE [Concomitant]
  11. FUROSEMIDE [Concomitant]
  12. INSULIN [Concomitant]
  13. LEVOTHYROXINE [Concomitant]
  14. MIRTAZAPINE [Concomitant]
  15. MULTIVITAMINS [Concomitant]
  16. NORTRIPTYLINE [Concomitant]
  17. PERCOCET [Concomitant]
  18. MIRALAX [Concomitant]
  19. SENNA [Concomitant]
  20. PROSOURCE [Concomitant]

REACTIONS (1)
  - Gastrointestinal haemorrhage [None]
